FAERS Safety Report 8455665-4 (Version None)
Quarter: 2012Q2

REPORT INFORMATION
  Report Type: 
  Country: None (occurrence: None)
  Receive Date: 20120614
  Receipt Date: 20120605
  Transmission Date: 20120825
  Serious: Yes (Death)
  Sender: FDA-Public Use
  Company Number: DKLU1081568

PATIENT
  Sex: Female

DRUGS (6)
  1. DACTINOMYCIN [Suspect]
     Indication: CHORIOCARCINOMA
     Dosage: 0.5 MG MILLIGRAM(S), ON DAY 8, INTRAVENOUS (NOT OTHERWISE SPECIFIED)
     Route: 042
  2. DACTINOMYCIN [Suspect]
     Indication: GESTATIONAL TROPHOBLASTIC TUMOUR
     Dosage: 0.5 MG MILLIGRAM(S), ON DAY 8, INTRAVENOUS (NOT OTHERWISE SPECIFIED)
     Route: 042
  3. METHOTREXATE [Suspect]
     Indication: GESTATIONAL TROPHOBLASTIC TUMOUR
     Dosage: ON DAY 8
  4. METHOTREXATE [Suspect]
     Indication: CHORIOCARCINOMA
     Dosage: ON DAY 8
  5. CISPLATIN [Suspect]
     Indication: GESTATIONAL TROPHOBLASTIC TUMOUR
     Dosage: ON DAY 1, INTRAVENOUS (NOT OTHERWISE SPECIFED)
     Route: 042
  6. CISPLATIN [Suspect]
     Indication: CHORIOCARCINOMA
     Dosage: ON DAY 1, INTRAVENOUS (NOT OTHERWISE SPECIFED)
     Route: 042

REACTIONS (7)
  - SEPSIS [None]
  - METASTASES TO LIVER [None]
  - METASTASES TO SKIN [None]
  - METASTASES TO CENTRAL NERVOUS SYSTEM [None]
  - ENDOCARDITIS [None]
  - METASTASES TO LUNG [None]
  - METASTASES TO KIDNEY [None]
